FAERS Safety Report 8791525 (Version 1)
Quarter: 2012Q4

REPORT INFORMATION
  Report Type: Spontaneous
  Country: US (occurrence: None)
  Receive Date: 20120914
  Receipt Date: 20120914
  Transmission Date: 20130627
  Serious: Yes (Other)
  Sender: FDA-Public Use
  Company Number: None

PATIENT
  Age: 61 Year
  Sex: Female
  Weight: 74.1 kg

DRUGS (2)
  1. CARVEDILOL [Suspect]
     Indication: PULMONARY HYPERTENSION
     Dates: start: 20120831
  2. CARVEDILOL [Suspect]
     Indication: PULMONARY HYPERTENSION
     Dates: start: 20120901

REACTIONS (2)
  - Urticaria [None]
  - Erythema [None]
